FAERS Safety Report 17850963 (Version 1)
Quarter: 2020Q2

REPORT INFORMATION
  Report Type: Spontaneous
  Country: US (occurrence: US)
  Receive Date: 20200602
  Receipt Date: 20200602
  Transmission Date: 20200714
  Serious: Yes (Other)
  Sender: FDA-Public Use
  Company Number: US-PFIZER INC-2020214919

PATIENT
  Sex: Female
  Weight: 149.69 kg

DRUGS (1)
  1. GABAPENTIN. [Suspect]
     Active Substance: GABAPENTIN
     Indication: FIBROMYALGIA
     Dosage: 900 MG, 3X/DAY

REACTIONS (4)
  - Homicidal ideation [Unknown]
  - Product use in unapproved indication [Unknown]
  - Suicidal behaviour [Unknown]
  - Off label use [Unknown]
